FAERS Safety Report 5486804-5 (Version None)
Quarter: 2007Q4

REPORT INFORMATION
  Report Type: 
  Country: None (occurrence: None)
  Receive Date: 20071016
  Receipt Date: 20071010
  Transmission Date: 20080405
  Serious: Yes (Other)
  Sender: FDA-Public Use
  Company Number: AU-AVENTIS-200714771EU

PATIENT
  Age: 63 Year
  Sex: Male

DRUGS (4)
  1. INDAPAMIDE [Suspect]
     Route: 048
  2. ROSUVASTATIN CALCIUM [Concomitant]
     Dosage: DOSE: UNK
  3. ATENOLOL [Concomitant]
     Dosage: DOSE: UNK
  4. PERINDOPRIL ERBUMINE [Concomitant]
     Route: 048

REACTIONS (3)
  - ACUTE CORONARY SYNDROME [None]
  - HYPOKALAEMIA [None]
  - HYPONATRAEMIA [None]
